FAERS Safety Report 14403073 (Version 1)
Quarter: 2018Q1

REPORT INFORMATION
  Report Type: Spontaneous
  Country: US (occurrence: US)
  Receive Date: 20180117
  Receipt Date: 20180117
  Transmission Date: 20180509
  Serious: No
  Sender: FDA-Public Use
  Company Number: None

PATIENT
  Age: 65 Year
  Sex: Female
  Weight: 68.49 kg

DRUGS (7)
  1. METROPOLOL [Concomitant]
     Active Substance: METOPROLOL
  2. ONE A DAY VITAMINS [Concomitant]
  3. BRILINTA [Concomitant]
     Active Substance: TICAGRELOR
  4. LEVOTHYROXINE. [Concomitant]
     Active Substance: LEVOTHYROXINE
  5. CRESTOR [Suspect]
     Active Substance: ROSUVASTATIN CALCIUM
     Indication: MYOCARDIAL INFARCTION
     Dosage: DOSE - ORIGINAL STRENGTH WAS 40MG (CURRENTLY 10MG)
     Route: 048
     Dates: start: 20170402
  6. ASPIRIN. [Concomitant]
     Active Substance: ASPIRIN
  7. STOOL SOFTENER (DOCUSATE) [Concomitant]
     Active Substance: DOCUSATE

REACTIONS (1)
  - Eructation [None]

NARRATIVE: CASE EVENT DATE: 20170707
